FAERS Safety Report 6734761-3 (Version None)
Quarter: 2010Q2

REPORT INFORMATION
  Report Type: 
  Country: None (occurrence: None)
  Receive Date: 20100519
  Receipt Date: 20100519
  Transmission Date: 20101027
  Serious: Yes (Disabling)
  Sender: FDA-Public Use
  Company Number: None

PATIENT
  Sex: Female
  Weight: 77.1 kg

DRUGS (1)
  1. TAXUS LIBERTE ATOM [Suspect]

REACTIONS (4)
  - CHEST PAIN [None]
  - DEVICE OCCLUSION [None]
  - ELECTROCARDIOGRAM ST SEGMENT ELEVATION [None]
  - SURGICAL PROCEDURE REPEATED [None]
